FAERS Safety Report 7340952-3 (Version None)
Quarter: 2011Q1

REPORT INFORMATION
  Report Type: 
  Country: None (occurrence: None)
  Receive Date: 20110309
  Receipt Date: 20100927
  Transmission Date: 20110831
  Serious: No
  Sender: FDA-Public Use
  Company Number: US-ABBOTT-10P-163-0674834-00

PATIENT
  Sex: Female
  Weight: 135.29 kg

DRUGS (7)
  1. LUPRON DEPOT [Suspect]
     Indication: PELVIC PAIN
     Dates: start: 20100617
  2. LUPRON DEPOT [Suspect]
     Indication: OVARIAN CYST
  3. ALLEGRA [Concomitant]
     Indication: ASTHMA
  4. VOLTARA [Concomitant]
     Indication: ASTHMA
  5. ALBUTEROL [Concomitant]
     Indication: ASTHMA
  6. ZOLAIRE [Concomitant]
     Indication: ASTHMA
  7. LUPRON DEPOT [Suspect]
     Indication: POLYCYSTIC OVARIES

REACTIONS (2)
  - MENORRHAGIA [None]
  - PELVIC PAIN [None]
